FAERS Safety Report 21670504 (Version 1)
Quarter: 2022Q4

REPORT INFORMATION
  Report Type: Spontaneous
  Country: NO (occurrence: NO)
  Receive Date: 20221201
  Receipt Date: 20221201
  Transmission Date: 20230113
  Serious: Yes (Hospitalization)
  Sender: FDA-Public Use
  Company Number: None

PATIENT

DRUGS (8)
  1. NUCYNTA ER [Suspect]
     Active Substance: TAPENTADOL HYDROCHLORIDE
     Indication: Procedural pain
     Dosage: 100 MILLIGRAM, EVERY 12 HRS,
     Route: 065
     Dates: start: 20220217, end: 20220220
  2. NUCYNTA ER [Suspect]
     Active Substance: TAPENTADOL HYDROCHLORIDE
     Dosage: 100 MILLIGRAM, EVERY 12 HRS,
     Route: 065
     Dates: start: 20220221
  3. ACETAMINOPHEN [Concomitant]
     Active Substance: ACETAMINOPHEN
     Indication: Procedural pain
     Dosage: UNK
     Dates: start: 20220217, end: 202203
  4. DICLOFENAC [Concomitant]
     Active Substance: DICLOFENAC
     Indication: Procedural pain
     Dosage: UNK
     Dates: start: 20220217, end: 202202
  5. MORPHINE [Concomitant]
     Active Substance: MORPHINE
     Indication: Pain
  6. PENICILLIN V POTASSIUM [Concomitant]
     Active Substance: PENICILLIN V POTASSIUM
     Indication: Product used for unknown indication
  7. UNSPECIFIED INGREDIENT [Concomitant]
     Active Substance: UNSPECIFIED INGREDIENT
     Indication: Product used for unknown indication
  8. PARALGIN FORTE [CODEINE PHOSPHATE;PARACETAMOL] [Concomitant]
     Indication: Product used for unknown indication

REACTIONS (10)
  - Muscular weakness [Recovered/Resolved]
  - General physical health deterioration [Recovered/Resolved]
  - Oropharyngeal pain [Recovered/Resolved]
  - Feeding disorder [Recovered/Resolved]
  - Asthenia [Recovered/Resolved]
  - Vomiting [Recovered/Resolved]
  - Nausea [Recovered/Resolved]
  - Dizziness [Recovered/Resolved]
  - Abnormal dreams [Recovered/Resolved]
  - Fatigue [Recovered/Resolved]

NARRATIVE: CASE EVENT DATE: 20220218
